FAERS Safety Report 5000748-4 (Version None)
Quarter: 2006Q2

REPORT INFORMATION
  Report Type: 
  Country: None (occurrence: None)
  Receive Date: 20060512
  Receipt Date: 20050930
  Transmission Date: 20061013
  Serious: Yes (Hospitalization, Other)
  Sender: FDA-Public Use
  Company Number: US-MERCK-0510USA00131

PATIENT
  Age: 64 Year
  Sex: Male
  Weight: 86 kg

DRUGS (5)
  1. VIOXX [Suspect]
     Indication: ARTHRITIS
     Route: 048
     Dates: start: 19980101, end: 20041001
  2. VIOXX [Suspect]
     Indication: PAIN
     Route: 048
     Dates: start: 19980101, end: 20041001
  3. HYDROCHLOROTHIAZIDE [Concomitant]
     Route: 065
  4. ALLEGRA [Concomitant]
     Route: 065
  5. [COMPOSITION UNSPECIFIED] [Concomitant]
     Route: 065

REACTIONS (16)
  - ABDOMINAL HERNIA [None]
  - ACUTE MYOCARDIAL INFARCTION [None]
  - ANGINA UNSTABLE [None]
  - AORTIC ANEURYSM [None]
  - ARTERIOSCLEROSIS CORONARY ARTERY [None]
  - BACK INJURY [None]
  - BLOOD CHOLESTEROL INCREASED [None]
  - CHEST PAIN [None]
  - CHRONIC OBSTRUCTIVE PULMONARY DISEASE [None]
  - COR PULMONALE CHRONIC [None]
  - HEADACHE [None]
  - HERNIA [None]
  - HYPERTENSION [None]
  - LIP AND/OR ORAL CAVITY CANCER [None]
  - MYOCARDIAL INFARCTION [None]
  - MYOCARDIAL ISCHAEMIA [None]
